FAERS Safety Report 15371684 (Version 1)
Quarter: 2018Q4

REPORT INFORMATION
  Report Type: Spontaneous
  Country: DE (occurrence: DE)
  Receive Date: 20180911
  Receipt Date: 20180911
  Transmission Date: 20190204
  Serious: Yes (Death, Life-Threatening, Hospitalization)
  Sender: FDA-Public Use
  Company Number: PHBS1997DE00692

PATIENT
  Age: 57 Year
  Sex: Male
  Weight: 106 kg

DRUGS (11)
  1. SIRDALUD [Suspect]
     Active Substance: TIZANIDINE
     Dosage: 8 MG, QID
     Route: 048
     Dates: start: 19970224, end: 19970226
  2. SIRDALUD [Suspect]
     Active Substance: TIZANIDINE
     Indication: PRODUCT USED FOR UNKNOWN INDICATION
     Dosage: 4 MG, QID
     Route: 048
     Dates: start: 19970131, end: 19970223
  3. VOLTAREN [Suspect]
     Active Substance: DICLOFENAC SODIUM
     Indication: ARTHRALGIA
     Dosage: 100 MG, QD
     Route: 048
     Dates: start: 19970131, end: 19970218
  4. KATADOLON (FLUPIRTINE MALEATE) [Suspect]
     Active Substance: FLUPIRTINE MALEATE
     Dosage: 600 MG, UNK
     Route: 048
     Dates: end: 19970226
  5. KATADOLON (FLUPIRTINE MALEATE) [Suspect]
     Active Substance: FLUPIRTINE MALEATE
     Dosage: 100 MG, QID
     Route: 048
     Dates: start: 19970218, end: 19970226
  6. SIRDALUD [Suspect]
     Active Substance: TIZANIDINE
     Dosage: 2 MG, QID
     Route: 048
     Dates: start: 19970224, end: 19970226
  7. LUDIOMIL [Suspect]
     Active Substance: MAPROTILINE HYDROCHLORIDE
     Indication: PAIN
     Dosage: 25 MG, QID
     Route: 042
     Dates: start: 19970131, end: 19970217
  8. KATADOLON (FLUPIRTINE MALEATE) [Suspect]
     Active Substance: FLUPIRTINE MALEATE
     Indication: ARTHRALGIA
     Dosage: 100 MG, OT
     Route: 048
     Dates: start: 19970131, end: 19970217
  9. LOPIRIN (CAPTOPRIL) [Suspect]
     Active Substance: CAPTOPRIL
     Indication: HYPERTENSION
     Dosage: 50 MG, QD
     Route: 048
     Dates: end: 19970226
  10. HEPARIN-FRACTION, SODIUM SALT [Concomitant]
     Active Substance: HEPARIN SODIUM
     Indication: PRODUCT USED FOR UNKNOWN INDICATION
     Dosage: UNSPECIFIED
     Route: 065
  11. BELOC MITE (METOPROLOL TARTRATE) [Suspect]
     Active Substance: METOPROLOL TARTRATE
     Indication: HYPERTENSION
     Dosage: 50 MG, BID
     Route: 048
     Dates: start: 199702

REACTIONS (12)
  - Hepatitis A [Fatal]
  - Gangrene [Fatal]
  - Multiple organ dysfunction syndrome [Fatal]
  - Hepatic encephalopathy [Fatal]
  - Fatigue [Fatal]
  - Dyspnoea [Fatal]
  - Dizziness [Fatal]
  - Liver function test abnormal [Fatal]
  - Hepatic steatosis [Fatal]
  - Hepatic cirrhosis [Fatal]
  - Prothrombin time prolonged [Fatal]
  - Oedema peripheral [Fatal]

NARRATIVE: CASE EVENT DATE: 19970226
